FAERS Safety Report 21683067 (Version 2)
Quarter: 2023Q1

REPORT INFORMATION
  Report Type: Spontaneous
  Country: GB (occurrence: GB)
  Receive Date: 20221205
  Receipt Date: 20230126
  Transmission Date: 20230418
  Serious: Yes (Death, Other)
  Sender: FDA-Public Use
  Company Number: GB-MHRA-MED-202211291157240340-PFLCN

PATIENT
  Age: 71 Year
  Sex: Male

DRUGS (2)
  1. ABIRATERONE [Suspect]
     Active Substance: ABIRATERONE
     Indication: Product used for unknown indication
     Dosage: UNK
     Route: 065
  2. ABIRATERONE [Suspect]
     Active Substance: ABIRATERONE
     Dosage: UNK
     Route: 065
     Dates: start: 202106, end: 202207

REACTIONS (8)
  - Interstitial lung disease [Fatal]
  - Dyspnoea [Fatal]
  - Hypervolaemia [Fatal]
  - Hypoalbuminaemia [Fatal]
  - Pericardial effusion [Fatal]
  - Pleural effusion [Fatal]
  - Pneumonitis [Fatal]
  - Oedema peripheral [Fatal]

NARRATIVE: CASE EVENT DATE: 20220301
